FAERS Safety Report 5338970-X (Version None)
Quarter: 2007Q2

REPORT INFORMATION
  Report Type: 
  Country: None (occurrence: None)
  Receive Date: 20070404
  Receipt Date: 20060501
  Transmission Date: 20071010
  Serious: Yes (Other)
  Sender: FDA-Public Use
  Company Number: HQWYE202705MAY06

PATIENT
  Age: 37 Year
  Sex: Female
  Weight: 68.1 kg

DRUGS (5)
  1. ALAVERT [Suspect]
     Indication: EYE PRURITUS
     Dosage: 1 TABLET AS NEEDED, ORAL
     Route: 048
     Dates: start: 20060401, end: 20060501
  2. ALAVERT [Suspect]
     Indication: LACRIMATION INCREASED
     Dosage: 1 TABLET AS NEEDED, ORAL
     Route: 048
     Dates: start: 20060401, end: 20060501
  3. ALAVERT [Suspect]
     Indication: RHINORRHOEA
     Dosage: 1 TABLET AS NEEDED, ORAL
     Route: 048
     Dates: start: 20060401, end: 20060501
  4. ALAVERT [Suspect]
     Indication: SNEEZING
     Dosage: 1 TABLET AS NEEDED, ORAL
     Route: 048
     Dates: start: 20060401, end: 20060501
  5. ALAVERT [Suspect]
     Indication: THROAT IRRITATION
     Dosage: 1 TABLET AS NEEDED, ORAL
     Route: 048
     Dates: start: 20060401, end: 20060501

REACTIONS (3)
  - DRUG INEFFECTIVE [None]
  - SOMNOLENCE [None]
  - URTICARIA [None]
